FAERS Safety Report 8319732-8 (Version None)
Quarter: 2012Q1

REPORT INFORMATION
  Report Type: 
  Country: None (occurrence: None)
  Receive Date: 20120315
  Receipt Date: 20110404
  Transmission Date: 20120608
  Serious: Yes (Other)
  Sender: FDA-Public Use
  Company Number: PHHY2011US02828

PATIENT
  Age: 33 Year
  Sex: Female

DRUGS (1)
  1. GILENYA [Suspect]
     Indication: MULTIPLE SCLEROSIS
     Dosage: 0.5 MG, DAILY, ORAL
     Route: 048
     Dates: start: 20110106

REACTIONS (5)
  - HEART RATE INCREASED [None]
  - OVERDOSE [None]
  - MULTIPLE SCLEROSIS RELAPSE [None]
  - DIARRHOEA [None]
  - HYPERTENSION [None]
